FAERS Safety Report 15929217 (Version 1)
Quarter: 2019Q1

REPORT INFORMATION
  Report Type: Spontaneous
  Country: DK (occurrence: DK)
  Receive Date: 20190206
  Receipt Date: 20190206
  Transmission Date: 20190417
  Serious: Yes (Life-Threatening)
  Sender: FDA-Public Use
  Company Number: DK-B.I. PHARMACEUTICALS,INC./RIDGEFIELD-2019-12-000446

PATIENT
  Age: 70 Year
  Sex: Female
  Weight: 90 kg

DRUGS (9)
  1. METOPROLOL SUCCINATE. [Concomitant]
     Active Substance: METOPROLOL SUCCINATE
     Indication: HYPERTENSION
     Dosage: STYRKE: 100 MG.
     Route: 048
     Dates: start: 20130205
  2. CITALOPRAM [Concomitant]
     Active Substance: CITALOPRAM HYDROBROMIDE
     Indication: DEPRESSION
     Dosage: STYRKE: 20 MG.
     Route: 048
     Dates: start: 20160323
  3. TRAJENTA [Concomitant]
     Active Substance: LINAGLIPTIN
     Indication: TYPE 2 DIABETES MELLITUS
     Dosage: STYRKE: 5 MG.
     Route: 048
     Dates: start: 20160930
  4. ESTRADIOL. [Concomitant]
     Active Substance: ESTRADIOL
     Indication: HORMONE THERAPY
     Dosage: STRENGTH: 10 MICROGRAM
     Route: 067
     Dates: start: 20160825
  5. PRADAXA [Suspect]
     Active Substance: DABIGATRAN ETEXILATE MESYLATE
     Indication: ATRIAL FIBRILLATION
     Dosage: STRENGTH: 150 MG
     Route: 048
     Dates: start: 20140507, end: 20190109
  6. SELEXID [Concomitant]
     Indication: URINARY TRACT INFECTION
     Dosage: STYRKE: 400 MG.
     Route: 048
     Dates: start: 20170406
  7. ALLOPURINOL. [Concomitant]
     Active Substance: ALLOPURINOL
     Indication: GOUT
     Dosage: STYRKE: 100 MG.
     Route: 048
     Dates: start: 20161128
  8. FUROSEMID [Concomitant]
     Active Substance: FUROSEMIDE
     Indication: DIURETIC THERAPY
     Dosage: STYRKE: 40 MG.
     Route: 048
     Dates: start: 20150320
  9. DIGOXIN. [Concomitant]
     Active Substance: DIGOXIN
     Indication: ATRIAL FIBRILLATION
     Dosage: STRENGTH: 62.5 MICROGRAM
     Route: 048
     Dates: start: 20150320

REACTIONS (1)
  - Acute kidney injury [Not Recovered/Not Resolved]

NARRATIVE: CASE EVENT DATE: 20190109
